FAERS Safety Report 6664408-6 (Version None)
Quarter: 2010Q2

REPORT INFORMATION
  Report Type: 
  Country: None (occurrence: None)
  Receive Date: 20100401
  Receipt Date: 20100329
  Transmission Date: 20101027
  Serious: Yes (Hospitalization)
  Sender: FDA-Public Use
  Company Number: PHHO2010DE04912

PATIENT
  Sex: Female
  Weight: 65.5 kg

DRUGS (8)
  1. SIMULECT [Suspect]
     Indication: RENAL TRANSPLANT
     Dosage: 20 MG
     Route: 042
     Dates: start: 20100119
  2. SIMULECT [Suspect]
     Dosage: 20 MG
     Route: 042
     Dates: start: 20100123
  3. MYFORTIC [Suspect]
     Indication: RENAL TRANSPLANT
     Dosage: 1440 MG
     Route: 048
     Dates: start: 20100119
  4. SANDIMMUNE [Suspect]
     Indication: RENAL TRANSPLANT
     Dosage: 200 MG
     Route: 048
     Dates: start: 20100119
  5. NO TREATMENT RECEIVED NOMED [Suspect]
     Indication: RENAL TRANSPLANT
     Dosage: NO TREATMENT
  6. DECORTIN [Concomitant]
     Indication: PROPHYLAXIS
     Dosage: 30 MG, 1XDAILY
     Route: 048
     Dates: start: 20100210, end: 20100215
  7. DECORTIN [Concomitant]
     Dosage: 25 MG, 1XDAY
     Route: 048
     Dates: start: 20100216
  8. TAMBOCOR [Concomitant]
     Dosage: 200 MG/DAY
     Dates: start: 20010101

REACTIONS (2)
  - TACHYARRHYTHMIA [None]
  - TACHYCARDIA [None]
